FAERS Safety Report 13958758 (Version 1)
Quarter: 2017Q3

REPORT INFORMATION
  Report Type: Spontaneous
  Country: CH (occurrence: CH)
  Receive Date: 20170911
  Receipt Date: 20170911
  Transmission Date: 20171128
  Serious: Yes (Other)
  Sender: FDA-Public Use
  Company Number: CH-BAYER-2017-166857

PATIENT
  Sex: Male

DRUGS (1)
  1. CIPROXIN 250 MG [Suspect]
     Active Substance: CIPROFLOXACIN
     Route: 048
     Dates: start: 2013

REACTIONS (1)
  - Mental disorder [Unknown]

NARRATIVE: CASE EVENT DATE: 2013
